FAERS Safety Report 8256483 (Version 4)
Quarter: 2012Q4

REPORT INFORMATION
  Report Type: Report from Study
  Country: GB (occurrence: GB)
  Receive Date: 20111121
  Receipt Date: 20120918
  Transmission Date: 20130627
  Serious: Yes (Hospitalization)
  Sender: FDA-Public Use
  Company Number: GB-ASTRAZENECA-2011SE68331

PATIENT
  Age: 26720 Day
  Sex: Male

DRUGS (14)
  1. VANDETANIB [Suspect]
     Indication: THYROID CANCER
     Route: 048
     Dates: start: 20110722, end: 20110926
  2. VANDETANIB [Suspect]
     Indication: THYROID CANCER
     Route: 048
     Dates: start: 20111003, end: 20111010
  3. VANDETANIB [Suspect]
     Indication: THYROID CANCER
     Route: 048
     Dates: start: 20111028, end: 20111107
  4. VANDETANIB [Suspect]
     Indication: THYROID CANCER
     Route: 048
     Dates: start: 20111219
  5. OMEPRAZOLE [Concomitant]
     Indication: GASTRITIS PROPHYLAXIS
     Route: 048
  6. BISOPRILOL [Concomitant]
     Indication: HYPERTENSION
     Route: 048
  7. THYROXINE [Concomitant]
     Indication: THYROXINE THERAPY
     Route: 048
  8. PLAVIX FC [Concomitant]
     Indication: THROMBOSIS PROPHYLAXIS
     Route: 048
  9. DOSULEPIN [Concomitant]
     Indication: SLEEP DISORDER
     Route: 048
  10. DOSULEPIN [Concomitant]
     Indication: ANTIDEPRESSANT THERAPY
     Route: 048
  11. SIMVASTATIN [Concomitant]
     Indication: BLOOD CHOLESTEROL INCREASED
     Route: 048
  12. LACTULOSE [Concomitant]
     Indication: CONSTIPATION
  13. DIAZEPAM [Concomitant]
     Indication: ANXIETY
     Route: 048
  14. MUCODYNE [Concomitant]
     Indication: PRODUCTIVE COUGH
     Route: 048
     Dates: start: 20110727

REACTIONS (1)
  - Abscess limb [Recovered/Resolved]
